FAERS Safety Report 17824784 (Version 14)
Quarter: 2021Q4

REPORT INFORMATION
  Report Type: Spontaneous
  Country: GB (occurrence: GB)
  Receive Date: 20200526
  Receipt Date: 20211112
  Transmission Date: 20220303
  Serious: Yes (Other)
  Sender: FDA-Public Use
  Company Number: GB-MYLANLABS-2020M1050571

PATIENT
  Age: 58 Year
  Sex: Male
  Weight: 91 kg

DRUGS (30)
  1. LAMIVUDINE [Suspect]
     Active Substance: LAMIVUDINE
     Indication: Product used for unknown indication
     Dosage: 300 MILLIGRAM, QD(300 MILLIGRAM, ONCE A DAY)
     Route: 065
  2. LAMIVUDINE [Suspect]
     Active Substance: LAMIVUDINE
     Dosage: 1 DOSAGE FORM, QD
     Route: 048
  3. LAMIVUDINE [Suspect]
     Active Substance: LAMIVUDINE
     Dosage: 300 MILLIGRAM, QD
  4. LAMIVUDINE [Suspect]
     Active Substance: LAMIVUDINE
     Dosage: 1 DOSAGE FORM, QD (STRENGTH:300(UNITS NOT PROVIDED), ONCE DAILY)
     Route: 048
  5. VIRAMUNE [Suspect]
     Active Substance: NEVIRAPINE
     Indication: Product used for unknown indication
     Dosage: 200 MILLIGRAM, QD(200 MILLIGRAM, ONCE A DAY)
     Route: 048
  6. VIRAMUNE [Suspect]
     Active Substance: NEVIRAPINE
     Dosage: 1 DOSAGE FORM, QD
     Route: 048
  7. VIRAMUNE [Suspect]
     Active Substance: NEVIRAPINE
     Dosage: 200 MILLIGRAM, QD
     Route: 048
  8. VIRAMUNE [Suspect]
     Active Substance: NEVIRAPINE
     Dosage: 1 DOSAGE FORM, QD (STRENGTH: 200 (UNITS NOT PROVIDED), ONCE DAILY)
     Route: 065
  9. RALTEGRAVIR [Suspect]
     Active Substance: RALTEGRAVIR
     Indication: Product used for unknown indication
     Dosage: 2 DOSE QD(UNK UNK, BID)
     Route: 048
  10. RALTEGRAVIR [Suspect]
     Active Substance: RALTEGRAVIR
     Dosage: 2 DOSAGE FORM, QD
     Route: 048
  11. RALTEGRAVIR [Suspect]
     Active Substance: RALTEGRAVIR
     Dosage: 1 DOSAGE FORM
     Route: 048
  12. RALTEGRAVIR [Suspect]
     Active Substance: RALTEGRAVIR
     Dosage: 400 MILLIGRAM, QD
     Route: 048
  13. RALTEGRAVIR [Suspect]
     Active Substance: RALTEGRAVIR
     Dosage: 4 DOSAGE FORM, QD
     Route: 048
  14. RALTEGRAVIR [Suspect]
     Active Substance: RALTEGRAVIR
     Dosage: 1 DOSAGE FORM, QD (1 DOSAGE FORM, ONCE A DAY)
     Route: 048
  15. RALTEGRAVIR [Suspect]
     Active Substance: RALTEGRAVIR
     Dosage: UNK, BID (UNK, BID (2 DF, QD)   )
     Route: 065
  16. ISENTRESS [Suspect]
     Active Substance: RALTEGRAVIR POTASSIUM
     Indication: Product used for unknown indication
     Dosage: 400 MILLIGRAM, QD (1 ANTI-XA IU/ML, QD)
     Route: 048
  17. ISENTRESS [Suspect]
     Active Substance: RALTEGRAVIR POTASSIUM
     Dosage: 1 DOSAGE FORM, QD, STRENGTH: 400 (UNITS NOT PROVIDED), ONCE DAILY
     Route: 048
  18. ISENTRESS [Suspect]
     Active Substance: RALTEGRAVIR POTASSIUM
     Dosage: 2 DF, QD, (ONCE A DAY- BID)
     Route: 065
  19. ISENTRESS [Suspect]
     Active Substance: RALTEGRAVIR POTASSIUM
     Dosage: 2 DF, QD (2 ANTI-XA IU/ML, QD)
     Route: 065
  20. RALTEGRAVIR [Suspect]
     Active Substance: RALTEGRAVIR
     Indication: Product used for unknown indication
     Dosage: 2 DOSAGE FORM, QD
  21. RALTEGRAVIR [Suspect]
     Active Substance: RALTEGRAVIR
     Dosage: 1 DOSAGE FORM, QD
  22. RALTEGRAVIR POTASSIUM [Suspect]
     Active Substance: RALTEGRAVIR POTASSIUM
     Indication: Product used for unknown indication
     Dosage: 400 MG, QD (1 ANTI-XA IU/ML, QD)
     Route: 065
  23. RALTEGRAVIR POTASSIUM [Suspect]
     Active Substance: RALTEGRAVIR POTASSIUM
     Dosage: UNK, QD (2 DOSAGE FORM. 1 IN 1 POWDER FOR INFUSION)
  24. RALTEGRAVIR POTASSIUM [Suspect]
     Active Substance: RALTEGRAVIR POTASSIUM
     Dosage: UNK, QD (2 DF, QD, (1 IN 1 POWDER FOR INFUSION))
     Route: 065
  25. LAMIVUDINE [Suspect]
     Active Substance: LAMIVUDINE
     Indication: Product used for unknown indication
     Dosage: 1 DOSAGE FORM, QD (STRENGTH:300(UNITS NOT PROVIDED), ONCE DAILY
     Route: 048
  26. LAMIVUDINE [Suspect]
     Active Substance: LAMIVUDINE
     Dosage: 300 MILLIGRAM, QD
     Route: 065
  27. LAMIVUDINE [Suspect]
     Active Substance: LAMIVUDINE
     Dosage: 1 DOSAGE FORM, QD
     Route: 065
  28. RALTEGRAVIR POTASSIUM [Suspect]
     Active Substance: RALTEGRAVIR POTASSIUM
     Indication: Product used for unknown indication
     Dosage: 2 DOSAGE FORM, QD (2 ANTI-XA IU/ML, QD)
     Route: 065
  29. RALTEGRAVIR POTASSIUM [Suspect]
     Active Substance: RALTEGRAVIR POTASSIUM
     Dosage: 2 DOSAGE FORM, QD (ONCE A DAY- BID)
     Route: 065
  30. RALTEGRAVIR POTASSIUM [Suspect]
     Active Substance: RALTEGRAVIR POTASSIUM
     Dosage: 400 MILLIGRAM, QD (1 ANTI-XA IU/ML, QD)
     Route: 065

REACTIONS (8)
  - Suspected COVID-19 [Unknown]
  - Asthenia [Unknown]
  - Delirium [Unknown]
  - Hallucination [Unknown]
  - Cough [Unknown]
  - Pyrexia [Unknown]
  - Malaise [Unknown]
  - Fatigue [Unknown]

NARRATIVE: CASE EVENT DATE: 20200101
